FAERS Safety Report 18344651 (Version 1)
Quarter: 2020Q4

REPORT INFORMATION
  Report Type: Spontaneous
  Country: GB (occurrence: GB)
  Receive Date: 20201005
  Receipt Date: 20201005
  Transmission Date: 20210114
  Serious: Yes (Other)
  Sender: FDA-Public Use
  Company Number: GB-MYLANLABS-2020M1083122

PATIENT
  Age: 85 Year
  Sex: Male
  Weight: 84 kg

DRUGS (6)
  1. FELODIPINE. [Suspect]
     Active Substance: FELODIPINE
     Indication: HYPERTENSION
     Dosage: 10 MILLIGRAM, QD
     Dates: start: 20200803, end: 20200831
  2. DECAPEPTYL CR [Concomitant]
     Active Substance: GONADORELIN
     Dosage: UNK(AMBER 1 SHARE CARE DRUG)
     Dates: start: 20191227, end: 20200610
  3. RAMIPRIL. [Concomitant]
     Active Substance: RAMIPRIL
     Dosage: 1 DOSAGE FORM, QD
     Dates: start: 20200820
  4. AMLODIPINE [Concomitant]
     Active Substance: AMLODIPINE BESYLATE
     Indication: HYPERTENSION
     Dosage: 1 DOSAGE FORM, QD
     Dates: start: 20200708, end: 20200805
  5. ZEROCREAM [Concomitant]
     Indication: DRY SKIN
     Dosage: 1 DOSAGE FORM, PRN(APPLY)
     Dates: start: 20200817
  6. LUPRON DEPOT [Concomitant]
     Active Substance: LEUPROLIDE ACETATE
     Dosage: UNK(AMBER 1 DRUG)
     Dates: start: 20200610

REACTIONS (1)
  - Oedema [Recovering/Resolving]

NARRATIVE: CASE EVENT DATE: 20200827
